FAERS Safety Report 13897608 (Version 1)
Quarter: 2017Q3

REPORT INFORMATION
  Report Type: Spontaneous
  Country: MX (occurrence: MX)
  Receive Date: 20170823
  Receipt Date: 20170823
  Transmission Date: 20171127
  Serious: Yes (Hospitalization)
  Sender: FDA-Public Use
  Company Number: MX-BIOMARINAP-MX-2017-115108

PATIENT
  Age: 4 Year
  Sex: Male
  Weight: 14.5 kg

DRUGS (2)
  1. ALDURAZYME [Suspect]
     Active Substance: LARONIDASE
     Indication: MUCOPOLYSACCHARIDOSIS I
     Dosage: UNK UNK, QW
     Route: 041
     Dates: start: 201704, end: 20170811
  2. ALDURAZYME [Suspect]
     Active Substance: LARONIDASE
     Dosage: UNK UNK, QW
     Route: 041
     Dates: start: 201505

REACTIONS (5)
  - Device related infection [Recovering/Resolving]
  - Pyrexia [Recovering/Resolving]
  - Vomiting [Recovering/Resolving]
  - Chills [Recovering/Resolving]
  - Tremor [Recovering/Resolving]

NARRATIVE: CASE EVENT DATE: 20170811
